FAERS Safety Report 13725072 (Version 2)
Quarter: 2017Q3

REPORT INFORMATION
  Report Type: Spontaneous
  Country: US (occurrence: US)
  Receive Date: 20170706
  Receipt Date: 20170727
  Transmission Date: 20171127
  Serious: No
  Sender: FDA-Public Use
  Company Number: US-PFIZER INC-2017286377

PATIENT
  Sex: Female

DRUGS (1)
  1. XELJANZ XR [Suspect]
     Active Substance: TOFACITINIB CITRATE
     Dosage: 11 MG, UNK
     Route: 048
     Dates: start: 201705

REACTIONS (9)
  - Joint stiffness [Unknown]
  - Muscle fatigue [Unknown]
  - Joint swelling [Unknown]
  - Gait disturbance [Unknown]
  - Intentional product misuse [Unknown]
  - Micturition disorder [Unknown]
  - Arthralgia [Unknown]
  - Asthenia [Unknown]
  - Tremor [Unknown]
